FAERS Safety Report 23862232 (Version 1)
Quarter: 2024Q2

REPORT INFORMATION
  Report Type: Spontaneous
  Country: LA (occurrence: LA)
  Receive Date: 20240516
  Receipt Date: 20240516
  Transmission Date: 20240716
  Serious: Yes (Death, Life-Threatening, Hospitalization, Other)
  Sender: FDA-Public Use
  Company Number: None

PATIENT
  Age: 41 Year
  Sex: Female

DRUGS (1)
  1. PREDNISOLONE [Suspect]
     Active Substance: PREDNISOLONE
     Indication: Sarcoidosis
     Dosage: 40 MILLIGRAM, QD
     Route: 065

REACTIONS (4)
  - Respiratory failure [Fatal]
  - Cutaneous listeriosis [Fatal]
  - Septic shock [Fatal]
  - Cardiac failure [Fatal]
